FAERS Safety Report 9392787 (Version 1)
Quarter: 2013Q3

REPORT INFORMATION
  Report Type: Spontaneous
  Country: US (occurrence: None)
  Receive Date: 20130708
  Receipt Date: 20130708
  Transmission Date: 20140515
  Serious: Yes (Life-Threatening, Hospitalization, Disabling, Other)
  Sender: FDA-Public Use
  Company Number: None

PATIENT
  Age: 48 Year
  Sex: Female
  Weight: 90.72 kg

DRUGS (2)
  1. CYMBALTA [Suspect]
     Indication: FIBROMA
     Route: 048
  2. CYMBALTA [Suspect]
     Route: 048

REACTIONS (7)
  - Tremor [None]
  - Hyperhidrosis [None]
  - Tachycardia [None]
  - Serotonin syndrome [None]
  - Atrial fibrillation [None]
  - Drug withdrawal syndrome [None]
  - Mood swings [None]
